FAERS Safety Report 9311357 (Version 1)
Quarter: 2013Q2

REPORT INFORMATION
  Report Type: Report from Study
  Country: US (occurrence: US)
  Receive Date: 20130528
  Receipt Date: 20130528
  Transmission Date: 20140414
  Serious: Yes (Hospitalization, Other)
  Sender: FDA-Public Use
  Company Number: US-BRISTOL-MYERS SQUIBB COMPANY-18910679

PATIENT
  Age: 54 Year
  Sex: Male
  Weight: 85.9 kg

DRUGS (1)
  1. IPILIMUMAB [Suspect]
     Indication: MALIGNANT MELANOMA
     Dosage: 870MG:TOTAL DOSE?LAST DOSE:08APR2013
     Route: 042
     Dates: start: 20130408

REACTIONS (4)
  - Pruritus [Recovering/Resolving]
  - Dermatitis acneiform [Recovering/Resolving]
  - Sepsis [Recovering/Resolving]
  - Skin infection [Recovering/Resolving]
